FAERS Safety Report 21966759 (Version 1)
Quarter: 2023Q1

REPORT INFORMATION
  Report Type: Other
  Country: US (occurrence: None)
  Receive Date: 20230208
  Receipt Date: 20230208
  Transmission Date: 20230417
  Serious: Yes (Hospitalization, Other)
  Sender: FDA-Public Use
  Company Number: US-ROCHE-3277134

PATIENT
  Age: 67 Year
  Sex: Female
  Weight: 68.100 kg

DRUGS (10)
  1. OCREVUS [Suspect]
     Active Substance: OCRELIZUMAB
     Indication: Relapsing multiple sclerosis
     Dosage: NO
     Route: 065
     Dates: start: 2018, end: 2022
  2. BACLOFEN [Concomitant]
     Active Substance: BACLOFEN
     Dosage: MS BACK AND LEGS?2 TABS IN AM AND 2 TABS AT BEDTIME ;ONGOING: YES
     Route: 048
  3. TRAMADOL [Concomitant]
     Active Substance: TRAMADOL
     Dosage: PAIN BACK AND LEGS
     Route: 048
  4. GABAPENTIN [Concomitant]
     Active Substance: GABAPENTIN
     Indication: Pain in extremity
     Dosage: AT BEDTIME ;ONGOING: YES
     Route: 048
  5. MELATONIN [Concomitant]
     Active Substance: MELATONIN
     Dosage: HELP TO SLEEP AT NIGHT
     Route: 048
  6. CLONAZEPAM [Concomitant]
     Active Substance: CLONAZEPAM
     Indication: Anxiety
  7. IBUPROFEN [Concomitant]
     Active Substance: IBUPROFEN
     Dosage: LEGS AND BACK PAIN
     Route: 048
  8. LEXAPROFEN [Concomitant]
     Indication: Anxiety
     Route: 048
  9. SIMVASTATIN [Concomitant]
     Active Substance: SIMVASTATIN
  10. ASPIRIN [Concomitant]
     Active Substance: ASPIRIN

REACTIONS (10)
  - Septic shock [Not Recovered/Not Resolved]
  - Fall [Unknown]
  - Hypoaesthesia [Recovered/Resolved]
  - Muscular weakness [Recovered/Resolved]
  - Loss of consciousness [Unknown]
  - Hypotension [Recovered/Resolved]
  - Dysgraphia [Not Recovered/Not Resolved]
  - Pyrexia [Recovered/Resolved]
  - Urinary tract infection [Recovered/Resolved]
  - Clostridium difficile infection [Not Recovered/Not Resolved]

NARRATIVE: CASE EVENT DATE: 20210701
